FAERS Safety Report 19979309 (Version 1)
Quarter: 2021Q4

REPORT INFORMATION
  Report Type: Spontaneous
  Country: GB (occurrence: GB)
  Receive Date: 20211021
  Receipt Date: 20211021
  Transmission Date: 20220303
  Serious: Yes (Disabling, Other)
  Sender: FDA-Public Use
  Company Number: GB-ABBVIE-21K-167-4126938-00

PATIENT
  Age: 68 Year
  Sex: Female
  Weight: 63.5 kg

DRUGS (4)
  1. EPILIM [Suspect]
     Active Substance: VALPROATE SODIUM
     Indication: Mood swings
     Route: 048
     Dates: start: 20190205, end: 20190319
  2. IBUPROFEN [Concomitant]
     Active Substance: IBUPROFEN
     Indication: Product used for unknown indication
     Route: 065
  3. OLANZAPINE [Concomitant]
     Active Substance: OLANZAPINE
     Indication: Product used for unknown indication
     Route: 065
  4. ACETAMINOPHEN [Concomitant]
     Active Substance: ACETAMINOPHEN
     Indication: Product used for unknown indication
     Route: 065

REACTIONS (6)
  - Papule [Unknown]
  - Balance disorder [Unknown]
  - Burning sensation [Unknown]
  - Pain [Unknown]
  - Peripheral swelling [Recovering/Resolving]
  - Initial insomnia [Unknown]

NARRATIVE: CASE EVENT DATE: 20190210
